FAERS Safety Report 18377998 (Version 1)
Quarter: 2020Q4

REPORT INFORMATION
  Report Type: Spontaneous
  Country: JO (occurrence: JO)
  Receive Date: 20201013
  Receipt Date: 20201013
  Transmission Date: 20210114
  Serious: Yes (Hospitalization, Other)
  Sender: FDA-Public Use
  Company Number: JO-CELGENEUS-JOR-20201002304

PATIENT
  Age: 72 Year
  Sex: Male

DRUGS (2)
  1. POMALIDOMIDE [Suspect]
     Active Substance: POMALIDOMIDE
     Dosage: LOW DOSE
     Route: 048
     Dates: start: 2020
  2. POMALIDOMIDE [Suspect]
     Active Substance: POMALIDOMIDE
     Indication: PLASMA CELL MYELOMA
     Dosage: 4 MILLIGRAM
     Route: 048
     Dates: start: 201908, end: 202009

REACTIONS (5)
  - Wound infection [Not Recovered/Not Resolved]
  - Bacterial diarrhoea [Recovered/Resolved]
  - Platelet count decreased [Unknown]
  - Hypokalaemia [Not Recovered/Not Resolved]
  - Pneumonia [Unknown]

NARRATIVE: CASE EVENT DATE: 2020
